FAERS Safety Report 12520822 (Version 7)
Quarter: 2017Q1

REPORT INFORMATION
  Report Type: Spontaneous
  Country: US (occurrence: US)
  Receive Date: 20160701
  Receipt Date: 20170206
  Transmission Date: 20170428
  Serious: Yes (Other)
  Sender: FDA-Public Use
  Company Number: US-PFIZER INC-2016320316

PATIENT
  Age: 64 Year
  Sex: Female
  Weight: 62.13 kg

DRUGS (6)
  1. IBRANCE [Suspect]
     Active Substance: PALBOCICLIB
     Dosage: 75 MG, UNK
     Dates: start: 201605
  2. IBRANCE [Suspect]
     Active Substance: PALBOCICLIB
     Dosage: 75 MG, (D1-D21 Q28D)
     Route: 048
     Dates: start: 20160627
  3. IBRANCE [Suspect]
     Active Substance: PALBOCICLIB
     Dosage: 75 MG, CYCLIC (D1-D21 Q28D)
     Route: 048
     Dates: start: 20160627
  4. IBRANCE [Suspect]
     Active Substance: PALBOCICLIB
     Indication: BREAST CANCER METASTATIC
     Dosage: 125 MG, CYCLIC (DAY1 TO DAY21, EVERY 28 DAYS)
     Route: 048
     Dates: start: 201604
  5. IBRANCE [Suspect]
     Active Substance: PALBOCICLIB
     Dosage: 75 MG, CYCLIC, (DAY 1-21 Q 28 DAYS)
     Route: 048
     Dates: start: 20160627
  6. IBRANCE [Suspect]
     Active Substance: PALBOCICLIB
     Dosage: 75 MG, CYCLIC (DAYS1-21 Q28DAYS)
     Route: 048
     Dates: start: 201604, end: 20161216

REACTIONS (10)
  - Dysgeusia [Not Recovered/Not Resolved]
  - Somnolence [Unknown]
  - Breast cancer metastatic [Unknown]
  - Dizziness [Unknown]
  - Insomnia [Unknown]
  - Decreased appetite [Not Recovered/Not Resolved]
  - Neutropenia [Recovering/Resolving]
  - Weight decreased [Unknown]
  - Disease progression [Unknown]
  - Fatigue [Not Recovered/Not Resolved]

NARRATIVE: CASE EVENT DATE: 201604
